FAERS Safety Report 11525448 (Version 1)
Quarter: 2015Q3

REPORT INFORMATION
  Report Type: Spontaneous
  Country: FR (occurrence: FR)
  Receive Date: 20150918
  Receipt Date: 20150918
  Transmission Date: 20151125
  Serious: Yes (Death, Other)
  Sender: FDA-Public Use
  Company Number: FR-GLAXOSMITHKLINE-FR2015GSK133797

PATIENT
  Age: 84 Year
  Sex: Female

DRUGS (6)
  1. ZOPHREN [Suspect]
     Active Substance: ONDANSETRON
     Indication: PREMEDICATION
     Dosage: 8 MG, SINGLE
     Route: 042
     Dates: start: 20150715, end: 20150715
  2. CARBOPLATINE [Suspect]
     Active Substance: CARBOPLATIN
     Indication: BREAST CANCER
     Dosage: 100 MG, SINGLE
     Route: 042
     Dates: start: 20150715, end: 20150715
  3. POLARAMINE [Suspect]
     Active Substance: DEXCHLORPHENIRAMINE MALEATE
     Indication: PREMEDICATION
     Dosage: 2.5 MG, SINGLE
     Route: 042
     Dates: start: 20150715, end: 20150715
  4. AZANTAC [Suspect]
     Active Substance: RANITIDINE HYDROCHLORIDE
     Indication: PROPHYLAXIS
     Dosage: 25 MG, SINGLE
     Route: 042
     Dates: start: 20150715, end: 20150715
  5. METHYLPREDNISOLONE. [Suspect]
     Active Substance: METHYLPREDNISOLONE
     Indication: PREMEDICATION
     Dosage: 60 MG, SINGLE
     Route: 042
     Dates: start: 20150715, end: 20150715
  6. PACLITAXEL. [Suspect]
     Active Substance: PACLITAXEL
     Indication: BREAST CANCER
     Dosage: 120 MG, SINGLE
     Route: 042
     Dates: start: 20150715, end: 20150715

REACTIONS (1)
  - Death [Fatal]

NARRATIVE: CASE EVENT DATE: 20150715
